FAERS Safety Report 15213547 (Version 2)
Quarter: 2018Q3

REPORT INFORMATION
  Report Type: Spontaneous
  Country: PL (occurrence: PL)
  Receive Date: 20180730
  Receipt Date: 20180809
  Transmission Date: 20181010
  Serious: Yes (Other)
  Sender: FDA-Public Use
  Company Number: PL-SA-2018SA198625

PATIENT
  Age: 31 Year
  Sex: Female

DRUGS (1)
  1. CEREZYME [Suspect]
     Active Substance: IMIGLUCERASE
     Indication: GAUCHER^S DISEASE
     Dosage: UNK
     Route: 041
     Dates: start: 20141009

REACTIONS (3)
  - Pituitary tumour benign [Unknown]
  - Carotid artery aneurysm [Unknown]
  - Splenomegaly [Recovered/Resolved]

NARRATIVE: CASE EVENT DATE: 20151008
